FAERS Safety Report 14346333 (Version 1)
Quarter: 2018Q1

REPORT INFORMATION
  Report Type: Report from Study
  Country: US (occurrence: US)
  Receive Date: 20180103
  Receipt Date: 20180103
  Transmission Date: 20180509
  Serious: Yes (Other)
  Sender: FDA-Public Use
  Company Number: US-BAUSCH-BL-2017-036513

PATIENT
  Sex: Male

DRUGS (1)
  1. XIFAXAN [Suspect]
     Active Substance: RIFAXIMIN
     Indication: PRODUCT USED FOR UNKNOWN INDICATION
     Route: 065

REACTIONS (7)
  - Testicular disorder [Unknown]
  - Rib fracture [Unknown]
  - Fluid retention [Unknown]
  - Limb injury [Unknown]
  - General physical health deterioration [Unknown]
  - Hernia [Unknown]
  - Road traffic accident [Unknown]
